FAERS Safety Report 8055903-6 (Version None)
Quarter: 2012Q1

REPORT INFORMATION
  Report Type: 
  Country: None (occurrence: None)
  Receive Date: 20120112
  Receipt Date: 20111229
  Transmission Date: 20120608
  Serious: Yes (Hospitalization)
  Sender: FDA-Public Use
  Company Number: UTC-014018

PATIENT
  Age: 25 Year
  Sex: Male
  Weight: 61.3 kg

DRUGS (5)
  1. TRACLEER [Concomitant]
  2. COUMADIN [Concomitant]
  3. REVATIO [Concomitant]
  4. REMODULIN [Suspect]
     Indication: PULMONARY ARTERIAL HYPERTENSION
     Dosage: 14.4 UG/KG (0.01 UG/KG, 1 IN 1 MIN), SUBCUTANEOUS
     Route: 058
     Dates: start: 20111202
  5. DIURETICS (DIURETICS) [Concomitant]

REACTIONS (3)
  - INFUSION SITE PAIN [None]
  - INFUSION SITE INDURATION [None]
  - SYNCOPE [None]
